FAERS Safety Report 4774612-X (Version None)
Quarter: 2005Q3

REPORT INFORMATION
  Report Type: 
  Country: None (occurrence: None)
  Receive Date: 20050921
  Receipt Date: 20050915
  Transmission Date: 20060218
  Serious: Yes (Hospitalization)
  Sender: FDA-Public Use
  Company Number: 2005SE05243

PATIENT
  Age: 49 Year
  Sex: Male

DRUGS (5)
  1. NEXIUM [Suspect]
     Route: 048
     Dates: start: 20050509, end: 20050519
  2. DIKLOFENAK [Suspect]
     Indication: MYOSITIS
     Route: 048
     Dates: start: 20050501, end: 20050501
  3. ALVEDON [Suspect]
     Route: 048
     Dates: start: 20050501, end: 20050501
  4. ZINACEF [Suspect]
     Indication: INFECTION
     Route: 042
     Dates: start: 20050509, end: 20050513
  5. CEFAMOX [Suspect]
     Indication: INFECTION
     Dates: start: 20050501, end: 20050501

REACTIONS (1)
  - CHOLESTASIS [None]
